FAERS Safety Report 26109935 (Version 1)
Quarter: 2025Q4

REPORT INFORMATION
  Report Type: Spontaneous
  Country: JP (occurrence: JP)
  Receive Date: 20251201
  Receipt Date: 20251201
  Transmission Date: 20260118
  Serious: Yes (Life-Threatening)
  Sender: MERCK SHARP & DOHME LLC
  Company Number: JP-009507513-2354608

PATIENT
  Sex: Male
  Weight: 55 kg

DRUGS (12)
  1. KEYTRUDA [Suspect]
     Active Substance: PEMBROLIZUMAB
     Indication: Lung neoplasm malignant
     Route: 041
     Dates: start: 20251022, end: 20251022
  2. PAXLOVID [Suspect]
     Active Substance: NIRMATRELVIR\RITONAVIR
     Indication: COVID-19
     Route: 048
     Dates: start: 20251022, end: 20251026
  3. Levetiracetam tablet 500mg [Concomitant]
     Dosage: STRENGTH: 500MG
     Route: 048
     Dates: start: 20250905
  4. Rabeprazole Sodium Tablets 5mg^Chemiphar^ [Concomitant]
     Dosage: STRENGTH: 10MG
     Route: 048
     Dates: start: 20250905
  5. ASPARA Potassium Tablets 300mg [Concomitant]
     Dosage: STRENGTH: 300MG
     Route: 048
     Dates: start: 20250905
  6. DECADRON Tablets 0.5mg [Concomitant]
     Dosage: STRENGTH: 0.5MG
     Route: 048
     Dates: start: 20251001
  7. SULFAMETHOXAZOLE\TRIMETHOPRIM [Concomitant]
     Active Substance: SULFAMETHOXAZOLE\TRIMETHOPRIM
     Route: 048
     Dates: start: 20250910
  8. TENELIA OD TABLETS 20mg [Concomitant]
     Dosage: STRENGTH: 20MG
     Route: 048
     Dates: start: 20251002
  9. FUNGIZONE Syrup 100mg/ml [Concomitant]
     Dosage: STRENGTH: 100MG/ML
     Dates: start: 20251022
  10. Yuekinkeep [Concomitant]
     Dates: start: 20251002
  11. Levofloxacin injection 500mg/100ml [Concomitant]
     Dosage: STRENGTH: 500MG/100ML
     Dates: start: 20251007
  12. ANAEMETRO Intravenous infusion 500mg/100ml [Concomitant]
     Dosage: STRENGTH: 500MG/100ML
     Dates: start: 20251007

REACTIONS (1)
  - Toxic epidermal necrolysis [Not Recovered/Not Resolved]

NARRATIVE: CASE EVENT DATE: 20251029
